FAERS Safety Report 12669670 (Version 3)
Quarter: 2017Q1

REPORT INFORMATION
  Report Type: Report from Study
  Country: None (occurrence: DE)
  Receive Date: 20160819
  Receipt Date: 20170124
  Transmission Date: 20170428
  Serious: Yes (Death)
  Sender: FDA-Public Use
  Company Number: DE-ABBVIE-16K-062-1704145-00

PATIENT
  Age: 74 Year
  Sex: Male

DRUGS (6)
  1. DUODOPA [Suspect]
     Active Substance: CARBIDOPA\LEVODOPA
     Dosage: MD: 13.0ML; CRD: 8.0ML/H; CRN: 3.5ML/H; ED: 2.5ML, 24 HOURS THERAPY
     Route: 050
     Dates: start: 20160809, end: 2016
  2. DUODOPA [Suspect]
     Active Substance: CARBIDOPA\LEVODOPA
     Indication: PARKINSON^S DISEASE
     Dosage: MD: 13.0ML; CRD: 7.0ML/H; CRN: 3.5ML/H; ED: 2.5ML
     Route: 050
     Dates: start: 20160615, end: 20160809
  3. DUODOPA [Suspect]
     Active Substance: CARBIDOPA\LEVODOPA
     Dosage: DOSE INCREASED
     Route: 050
     Dates: start: 2016
  4. MORPHINE [Concomitant]
     Active Substance: MORPHINE
     Indication: PRODUCT USED FOR UNKNOWN INDICATION
  5. OMEPRAZOLE. [Concomitant]
     Active Substance: OMEPRAZOLE
     Indication: PRODUCT USED FOR UNKNOWN INDICATION
  6. PARACETAMOL 1000 SUP [Concomitant]
     Indication: PRODUCT USED FOR UNKNOWN INDICATION

REACTIONS (6)
  - Pyrexia [Fatal]
  - Hypokinesia [Not Recovered/Not Resolved]
  - Akinesia [Not Recovered/Not Resolved]
  - Pneumonia [Fatal]
  - Restlessness [Not Recovered/Not Resolved]
  - Musculoskeletal stiffness [Not Recovered/Not Resolved]

NARRATIVE: CASE EVENT DATE: 2016
